FAERS Safety Report 9731246 (Version 1)
Quarter: 2013Q4

REPORT INFORMATION
  Report Type: Spontaneous
  Country: NL (occurrence: NL)
  Receive Date: 20131203
  Receipt Date: 20131203
  Transmission Date: 20140711
  Serious: Yes (Disabling)
  Sender: FDA-Public Use
  Company Number: NL-TEVA-446106ISR

PATIENT
  Age: 7 Decade
  Sex: Female

DRUGS (4)
  1. ALENDRONIC ACID [Suspect]
     Route: 065
  2. SIMVASTATIN [Concomitant]
  3. AMLODIPINE [Concomitant]
  4. ATENOLOL [Concomitant]

REACTIONS (2)
  - Vision blurred [Unknown]
  - Nausea [Unknown]
